FAERS Safety Report 6655488-2 (Version None)
Quarter: 2010Q1

REPORT INFORMATION
  Report Type: 
  Country: None (occurrence: None)
  Receive Date: 20100329
  Receipt Date: 20100325
  Transmission Date: 20100710
  Serious: Yes (Death)
  Sender: FDA-Public Use
  Company Number: US-B.I. PHARMACEUTICALS,INC./RIDGEFIELD-2010-BP-03476BP

PATIENT

DRUGS (2)
  1. MIRAPEX [Suspect]
  2. MICARDIS [Suspect]

REACTIONS (1)
  - DEATH [None]
